FAERS Safety Report 5811470-6 (Version None)
Quarter: 2008Q3

REPORT INFORMATION
  Report Type: 
  Country: None (occurrence: None)
  Receive Date: 20080716
  Receipt Date: 20080707
  Transmission Date: 20090109
  Serious: Yes (Other)
  Sender: FDA-Public Use
  Company Number: US-WYE-H02114408

PATIENT
  Sex: Female

DRUGS (3)
  1. PREMPRO [Suspect]
  2. ESTRADIOL [Suspect]
  3. NORETHINDRONE ACETATE/ETHINYL ESTRADIOL [Suspect]

REACTIONS (1)
  - CONTRALATERAL BREAST CANCER [None]
